FAERS Safety Report 9044886 (Version 3)
Quarter: 2016Q3

REPORT INFORMATION
  Report Type: Spontaneous
  Country: JP (occurrence: JP)
  Receive Date: 20130130
  Receipt Date: 20160818
  Transmission Date: 20161109
  Serious: Yes (Life-Threatening, Hospitalization, Other)
  Sender: FDA-Public Use
  Company Number: JP-GLAXOSMITHKLINE-B0827238A

PATIENT
  Age: 62 Year
  Sex: Female

DRUGS (9)
  1. INVEGA [Suspect]
     Active Substance: PALIPERIDONE
     Indication: DEPRESSION
     Dosage: 3 MG, QD
     Route: 048
     Dates: start: 20120719, end: 20120828
  2. EURODIN TABLET (JAPAN) [Suspect]
     Active Substance: ESTAZOLAM
     Indication: INSOMNIA
     Dosage: 4 MG, QD
     Route: 048
     Dates: start: 20120719, end: 20120828
  3. SEROQUEL [Suspect]
     Active Substance: QUETIAPINE FUMARATE
     Indication: DEPRESSED MOOD
     Dosage: 125 MG, QD
     Route: 048
     Dates: start: 20120719, end: 20121116
  4. SEROQUEL [Suspect]
     Active Substance: QUETIAPINE FUMARATE
     Indication: INSOMNIA
  5. LAMOTRIGINE. [Suspect]
     Active Substance: LAMOTRIGINE
     Indication: DEPRESSION
     Dosage: 25 MG, QD
     Route: 048
     Dates: start: 20120719, end: 2012
  6. INVEGA [Suspect]
     Active Substance: PALIPERIDONE
     Indication: DELUSION
  7. LAMOTRIGINE. [Suspect]
     Active Substance: LAMOTRIGINE
     Dosage: 25 MG, BID
     Route: 048
     Dates: start: 2012, end: 20120823
  8. LAMOTRIGINE. [Suspect]
     Active Substance: LAMOTRIGINE
     Dosage: UNK
     Route: 048
     Dates: start: 20120824, end: 20120825
  9. MYSLEE [Suspect]
     Active Substance: ZOLPIDEM TARTRATE
     Indication: INSOMNIA
     Dosage: 10 MG, QD
     Route: 048
     Dates: start: 20120719, end: 20120828

REACTIONS (13)
  - Pyrexia [Unknown]
  - Erythema of eyelid [Unknown]
  - Erythema [Unknown]
  - Lip erosion [Unknown]
  - Lymphadenopathy [Unknown]
  - Toxic epidermal necrolysis [Recovered/Resolved]
  - Rash maculo-papular [Unknown]
  - Rash generalised [Unknown]
  - Pigmentation disorder [Recovered/Resolved with Sequelae]
  - Constipation [Unknown]
  - Ocular hyperaemia [Unknown]
  - Eye discharge [Unknown]
  - Oral mucosa erosion [Unknown]

NARRATIVE: CASE EVENT DATE: 20120823
